FAERS Safety Report 12119361 (Version 1)
Quarter: 2016Q1

REPORT INFORMATION
  Report Type: Spontaneous
  Country: US (occurrence: US)
  Receive Date: 20160226
  Receipt Date: 20160226
  Transmission Date: 20160526
  Serious: Yes (Other)
  Sender: FDA-Public Use
  Company Number: US-ASTRAZENECA-2016SE19507

PATIENT
  Age: 16 Year
  Sex: Male

DRUGS (5)
  1. SEROQUEL XR [Suspect]
     Active Substance: QUETIAPINE FUMARATE
     Indication: BIPOLAR DISORDER
     Route: 048
     Dates: start: 201601
  2. SEROQUEL XR [Suspect]
     Active Substance: QUETIAPINE FUMARATE
     Indication: SCHIZOPHRENIA
     Route: 048
     Dates: start: 201601
  3. RITALIN [Concomitant]
     Active Substance: METHYLPHENIDATE HYDROCHLORIDE
     Route: 065
  4. TOPAMAX [Concomitant]
     Active Substance: TOPIRAMATE
     Route: 065
  5. PROZAC [Concomitant]
     Active Substance: FLUOXETINE HYDROCHLORIDE
     Route: 065

REACTIONS (6)
  - Mood altered [Unknown]
  - Anger [Unknown]
  - Irritability [Unknown]
  - Anxiety [Unknown]
  - Panic attack [Unknown]
  - Drug ineffective [Unknown]
